FAERS Safety Report 14261025 (Version 1)
Quarter: 2017Q4

REPORT INFORMATION
  Report Type: Spontaneous
  Country: KR (occurrence: KR)
  Receive Date: 20171207
  Receipt Date: 20171207
  Transmission Date: 20180321
  Serious: Yes (Death, Life-Threatening, Hospitalization, Other)
  Sender: FDA-Public Use
  Company Number: PHHY2017KR176551

PATIENT
  Age: 5 Year
  Sex: Female

DRUGS (3)
  1. ASPARAGINASE [Concomitant]
     Active Substance: ASPARAGINASE
     Indication: ACUTE LYMPHOCYTIC LEUKAEMIA
     Route: 065
  2. VINCRISTINE [Concomitant]
     Active Substance: VINCRISTINE
     Indication: ACUTE LYMPHOCYTIC LEUKAEMIA
     Route: 065
  3. DEXAMETHASONE. [Suspect]
     Active Substance: DEXAMETHASONE
     Indication: ACUTE LYMPHOCYTIC LEUKAEMIA
     Dosage: 6 MG/M2, UNK
     Route: 065

REACTIONS (8)
  - Cytomegalovirus colitis [Fatal]
  - Hypotension [Fatal]
  - Respiratory failure [Fatal]
  - Pneumonia cytomegaloviral [Fatal]
  - Haematochezia [Fatal]
  - Megacolon [Fatal]
  - Cytomegalovirus infection [Fatal]
  - Bacterial sepsis [Fatal]
